FAERS Safety Report 23509026 (Version 1)
Quarter: 2024Q1

REPORT INFORMATION
  Report Type: Spontaneous
  Country: US (occurrence: US)
  Receive Date: 20240209
  Receipt Date: 20240209
  Transmission Date: 20240410
  Serious: No
  Sender: FDA-Public Use
  Company Number: US-IBSA PHARMA INC.-2023IBS000733

PATIENT

DRUGS (2)
  1. TIROSINT-SOL [Suspect]
     Active Substance: LEVOTHYROXINE SODIUM
     Indication: Thyroid hormone replacement therapy
     Dosage: 50.5 MICROGRAM QD (37.5 MCG + 13 MCG)
     Route: 048
     Dates: start: 2023, end: 2023
  2. TIROSINT-SOL [Suspect]
     Active Substance: LEVOTHYROXINE SODIUM
     Dosage: 63.5 (37.5 MCG+13 MCG+13 MCG) QD
     Route: 048
     Dates: start: 2023

REACTIONS (5)
  - Dysgeusia [Unknown]
  - Paraesthesia oral [Unknown]
  - Tongue discomfort [Unknown]
  - Blood thyroid stimulating hormone increased [Unknown]
  - Product odour abnormal [Unknown]

NARRATIVE: CASE EVENT DATE: 20230101
